FAERS Safety Report 9422257 (Version 2)
Quarter: 2013Q3

REPORT INFORMATION
  Report Type: Report from Study
  Country: US (occurrence: US)
  Receive Date: 20130726
  Receipt Date: 20130729
  Transmission Date: 20140515
  Serious: Yes (Life-Threatening, Hospitalization)
  Sender: FDA-Public Use
  Company Number: US-009507513-1307USA013196

PATIENT
  Age: 68 Year
  Sex: Female
  Weight: 89.8 kg

DRUGS (6)
  1. VORINOSTAT [Suspect]
     Indication: DIFFUSE LARGE B-CELL LYMPHOMA
     Dosage: 400 MG, QD (ON DAYS 1-5)
     Route: 048
     Dates: start: 20130708, end: 20130712
  2. RITUXIMAB [Suspect]
     Indication: DIFFUSE LARGE B-CELL LYMPHOMA
     Dosage: 375 MG/M2, ONCE (ON DAY 3)
     Route: 042
     Dates: start: 20130710, end: 20130710
  3. CYCLOPHOSPHAMIDE [Suspect]
     Indication: DIFFUSE LARGE B-CELL LYMPHOMA
     Dosage: 750 MG/M2, ONCE (ON DAY 3)
     Route: 042
     Dates: start: 20130710, end: 20130710
  4. DOXORUBICIN [Suspect]
     Indication: DIFFUSE LARGE B-CELL LYMPHOMA
     Dosage: 50 MG/M2, ONCE (ON DAY 3)
     Route: 042
     Dates: start: 20130710, end: 20130710
  5. VINCRISTINE [Suspect]
     Indication: DIFFUSE LARGE B-CELL LYMPHOMA
     Dosage: 1.4 MG/M2, ONCE (ON DAY 3)
     Route: 042
     Dates: start: 20130710, end: 20130710
  6. PREDNISONE [Suspect]
     Indication: DIFFUSE LARGE B-CELL LYMPHOMA
     Dosage: 100 MG, QD (ON DAYS 3-7)
     Route: 048
     Dates: start: 20130710, end: 20130710

REACTIONS (1)
  - Febrile neutropenia [Unknown]
